FAERS Safety Report 14321321 (Version 3)
Quarter: 2018Q1

REPORT INFORMATION
  Report Type: Spontaneous
  Country: JP (occurrence: JP)
  Receive Date: 20171223
  Receipt Date: 20180215
  Transmission Date: 20180509
  Serious: Yes (Hospitalization)
  Sender: FDA-Public Use
  Company Number: PHJP2017JP036493

PATIENT
  Age: 78 Year
  Sex: Female
  Weight: 41.45 kg

DRUGS (7)
  1. COSENTYX [Suspect]
     Active Substance: SECUKINUMAB
     Indication: PUSTULAR PSORIASIS
     Dosage: 300 MG, QW
     Route: 058
     Dates: start: 20171201, end: 20171208
  2. SYMBICORT [Concomitant]
     Active Substance: BUDESONIDE\FORMOTEROL FUMARATE DIHYDRATE
     Indication: ASTHMA
     Dosage: 6 TO 12 INHALATIONS, 6 TIMES ONCE AT MAXIMUM, BID
     Route: 055
     Dates: start: 20110530
  3. PYDOXAL [Suspect]
     Active Substance: PYRIDOXAL
     Indication: PROPHYLAXIS
     Dosage: 1 DF, TID
     Route: 048
     Dates: start: 20171111, end: 20171213
  4. ISCOTIN [Suspect]
     Active Substance: ISONIAZID
     Indication: TUBERCULOSIS
     Dosage: 3 DF, QD
     Route: 048
     Dates: start: 20171111, end: 20171213
  5. HANGEKOBOKUTO [Suspect]
     Active Substance: HERBALS
     Indication: ASTHMA
     Dosage: 1 DF, QOD
     Route: 048
     Dates: start: 20061208, end: 20171213
  6. UNIPHYL [Concomitant]
     Active Substance: THEOPHYLLINE ANHYDROUS
     Indication: ASTHMA
     Dosage: 1 DF, QD
     Route: 048
     Dates: start: 20060220
  7. MONTELUKAST [Concomitant]
     Active Substance: MONTELUKAST SODIUM
     Indication: ASTHMA
     Dosage: 1 DF, QD
     Route: 048
     Dates: start: 20120512

REACTIONS (12)
  - Eosinophilic pneumonia [Unknown]
  - Pneumonia [Recovered/Resolved]
  - C-reactive protein increased [Unknown]
  - Erythema [Recovering/Resolving]
  - Computerised tomogram thorax abnormal [Unknown]
  - Lymphocyte count increased [Unknown]
  - Eosinophil count increased [Unknown]
  - Respiratory symptom [Unknown]
  - Lymphadenopathy [Unknown]
  - Facial pain [Unknown]
  - Drug eruption [Unknown]
  - Dyspnoea [Recovered/Resolved]

NARRATIVE: CASE EVENT DATE: 20171209
